FAERS Safety Report 5140482-3 (Version None)
Quarter: 2006Q4

REPORT INFORMATION
  Report Type: 
  Country: None (occurrence: None)
  Receive Date: 20061025
  Receipt Date: 20061025
  Transmission Date: 20070319
  Serious: Yes (Other)
  Sender: FDA-Public Use
  Company Number: None

PATIENT
  Age: 48 Year
  Sex: Female
  Weight: 102 kg

DRUGS (1)
  1. ZOFRAN [Suspect]
     Indication: VOMITING
     Dosage: 8 MG  ONE TIME   IV BOLUS
     Route: 040
     Dates: start: 20060807, end: 20060807

REACTIONS (2)
  - INJECTION SITE ERYTHEMA [None]
  - INJECTION SITE PRURITUS [None]
